FAERS Safety Report 5090090-8 (Version None)
Quarter: 2006Q3

REPORT INFORMATION
  Report Type: 
  Country: None (occurrence: None)
  Receive Date: 20060801
  Receipt Date: 20060203
  Transmission Date: 20061208
  Serious: Yes (Hospitalization)
  Sender: FDA-Public Use
  Company Number: OMPQ-PR-0602S-0075

PATIENT
  Age: 51 Year
  Sex: Female
  Weight: 104.3273 kg

DRUGS (7)
  1. OMNIPAQUE 140 [Suspect]
     Indication: ATHERECTOMY
     Dosage: 70 ML (35 ML ONMIPAQUE DILUTED WITH 35 ML SALINE), SINGLE DOSE, I.A.
     Route: 013
     Dates: start: 20060203, end: 20060203
  2. PLAVIX [Concomitant]
  3. NIFEDIPINE (PROCARDIA XL) [Concomitant]
  4. METOPROLOL SUCCINATE (TOPROL) [Concomitant]
  5. LASIX [Concomitant]
  6. GLUCOSE (DEXTROSE INFUSION 5%) [Concomitant]
  7. HEPARIN [Concomitant]

REACTIONS (1)
  - ANAPHYLACTIC REACTION [None]
